FAERS Safety Report 17266519 (Version 1)
Quarter: 2020Q1

REPORT INFORMATION
  Report Type: Spontaneous
  Country: US (occurrence: US)
  Receive Date: 20200114
  Receipt Date: 20200114
  Transmission Date: 20200409
  Serious: No
  Sender: FDA-Public Use
  Company Number: NVSC2020US006031

PATIENT
  Age: 12 Year
  Sex: Female

DRUGS (4)
  1. BUDESONIDE. [Suspect]
     Active Substance: BUDESONIDE
     Indication: FIBRINOUS BRONCHITIS
     Dosage: UNK
     Route: 055
  2. FORMOTEROL [Suspect]
     Active Substance: FORMOTEROL
     Indication: FIBRINOUS BRONCHITIS
     Dosage: UNK
     Route: 055
  3. ACETYLCYSTEINE. [Suspect]
     Active Substance: ACETYLCYSTEINE
     Indication: FIBRINOUS BRONCHITIS
     Dosage: UNK
     Route: 065
  4. ALTEPLASE. [Suspect]
     Active Substance: ALTEPLASE
     Indication: FIBRINOUS BRONCHITIS
     Dosage: UNK
     Route: 065

REACTIONS (1)
  - Productive cough [Unknown]
